FAERS Safety Report 8305012-3 (Version None)
Quarter: 2012Q2

REPORT INFORMATION
  Report Type: 
  Country: None (occurrence: None)
  Receive Date: 20120423
  Receipt Date: 20120419
  Transmission Date: 20120825
  Serious: Yes (Other)
  Sender: FDA-Public Use
  Company Number: BR-ABBOTT-12P-020-0905764-00

PATIENT
  Sex: Female
  Weight: 57 kg

DRUGS (2)
  1. HUMIRA [Suspect]
     Indication: CROHN'S DISEASE
     Route: 058
     Dates: end: 20111001
  2. UNKNOWN MEDICINE [Concomitant]
     Indication: INFLAMMATION
     Dosage: EVERY 8 HOURS
     Route: 048
     Dates: start: 20080101, end: 20111025

REACTIONS (3)
  - FISTULA [None]
  - GASTROINTESTINAL STENOSIS [None]
  - ABDOMINAL ABSCESS [None]
